FAERS Safety Report 7226544-5 (Version None)
Quarter: 2011Q1

REPORT INFORMATION
  Report Type: 
  Country: None (occurrence: None)
  Receive Date: 20110114
  Receipt Date: 20110104
  Transmission Date: 20110831
  Serious: Yes (Hospitalization)
  Sender: FDA-Public Use
  Company Number: JP-ASTELLAS-2010JP007667

PATIENT
  Sex: Male

DRUGS (4)
  1. BLADDERON [Interacting]
     Indication: NEUROGENIC BLADDER
     Dosage: 200 MG, TID
     Route: 048
     Dates: end: 20101221
  2. TAMSULOSIN HCL [Concomitant]
     Indication: NEUROGENIC BLADDER
     Dosage: 0.2 MG, UID/QD
     Route: 048
     Dates: start: 20101204
  3. VESICARE [Suspect]
     Indication: NEUROGENIC BLADDER
     Dosage: 10 MG, UID/QD
     Route: 048
     Dates: end: 20101221
  4. POLLAKISU [Interacting]
     Indication: NEUROGENIC BLADDER
     Dosage: 3 MG, TID
     Route: 048
     Dates: end: 20101221

REACTIONS (3)
  - DRUG INTERACTION [None]
  - URINARY RETENTION [None]
  - ILEUS [None]
